FAERS Safety Report 6728277-8 (Version None)
Quarter: 2010Q2

REPORT INFORMATION
  Report Type: 
  Country: None (occurrence: None)
  Receive Date: 20100517
  Receipt Date: 20100507
  Transmission Date: 20101027
  Serious: Yes (Other)
  Sender: FDA-Public Use
  Company Number: US-NOVOPROD-256523

PATIENT
  Sex: Female
  Weight: 72.562 kg

DRUGS (6)
  1. ACTIVELLA [Suspect]
     Indication: HORMONE REPLACEMENT THERAPY
     Dates: start: 20010330, end: 20040228
  2. ACTIVELLA [Suspect]
     Indication: HOT FLUSH
     Dates: start: 20040302, end: 20050421
  3. ACTIVELLA [Suspect]
     Indication: NIGHT SWEATS
  4. PROZAC                             /00724402/ [Concomitant]
     Indication: DEPRESSION
  5. HYDROCODIN                         /00060002/ [Concomitant]
     Indication: PAIN
  6. CODEINE SULFATE [Concomitant]
     Indication: BACK PAIN

REACTIONS (1)
  - BREAST CANCER [None]
